FAERS Safety Report 4837403-7 (Version None)
Quarter: 2005Q4

REPORT INFORMATION
  Report Type: 
  Country: None (occurrence: None)
  Receive Date: 20051122
  Receipt Date: 20051104
  Transmission Date: 20060501
  Serious: Yes (Life-Threatening)
  Sender: FDA-Public Use
  Company Number: DSA_26797_2005

PATIENT
  Age: 10 Year
  Sex: Female

DRUGS (5)
  1. ENALAPRIL MALEATE [Suspect]
     Dosage: 5 MG BID PO
     Route: 048
     Dates: end: 20050620
  2. FUROSEMIDE [Suspect]
     Dosage: 30 MG PO
     Route: 048
     Dates: end: 20050620
  3. FUROSEMIDE [Suspect]
     Dosage: 10 MG Q DAY PO
     Route: 048
     Dates: start: 20050622
  4. ACETAMINOPHEN [Concomitant]
  5. NADROPARIN [Concomitant]

REACTIONS (3)
  - HAEMODIALYSIS [None]
  - HYPOTENSION [None]
  - RENAL FAILURE ACUTE [None]
